FAERS Safety Report 10079825 (Version 1)
Quarter: 2014Q2

REPORT INFORMATION
  Report Type: Spontaneous
  Country: US (occurrence: US)
  Receive Date: 20140415
  Receipt Date: 20140415
  Transmission Date: 20141212
  Serious: Yes (Hospitalization)
  Sender: FDA-Public Use
  Company Number: US-UCBSA-117749

PATIENT
  Sex: Male

DRUGS (5)
  1. KEPPRA [Suspect]
     Dosage: DOSE UNKNOWN
  2. ZOLOFT [Suspect]
     Dosage: DOSE UNKNOWN
  3. NUEDEXTA [Suspect]
     Dosage: DOS UNKNOWN
  4. ZOFRAN [Suspect]
     Dosage: DOSE UNKNOWN
  5. FENTANYL [Suspect]
     Dosage: DOSE UNKNOWN

REACTIONS (3)
  - Convulsion [Unknown]
  - Serotonin syndrome [Unknown]
  - Pyrexia [Unknown]
